FAERS Safety Report 24945980 (Version 2)
Quarter: 2025Q1

REPORT INFORMATION
  Report Type: Spontaneous
  Country: JP (occurrence: JP)
  Receive Date: 20250209
  Receipt Date: 20250312
  Transmission Date: 20250409
  Serious: Yes (Other)
  Sender: TAKEDA
  Company Number: JP-TAKEDA-2025TJP001387

PATIENT
  Age: 7 Decade
  Sex: Male

DRUGS (2)
  1. FRUZAQLA [Suspect]
     Active Substance: FRUQUINTINIB
     Indication: Colorectal cancer recurrent
     Dosage: 5 MILLIGRAM, QD
     Dates: start: 20250110
  2. FRUZAQLA [Suspect]
     Active Substance: FRUQUINTINIB

REACTIONS (2)
  - Renal impairment [Unknown]
  - Proteinuria [Unknown]
